FAERS Safety Report 9588893 (Version 1)
Quarter: 2013Q4

REPORT INFORMATION
  Report Type: Spontaneous
  Country: US (occurrence: US)
  Receive Date: 20131003
  Receipt Date: 20131003
  Transmission Date: 20140711
  Serious: No
  Sender: FDA-Public Use
  Company Number: US-AMGEN-USASP2012066824

PATIENT
  Age: 50 Year
  Sex: Female

DRUGS (2)
  1. ENBREL [Suspect]
     Indication: PSORIASIS
     Dosage: 50 MG, 2 TIMES/WK
     Dates: start: 2008
  2. HUMIRA [Concomitant]
     Dosage: UNK

REACTIONS (4)
  - Rash [Recovered/Resolved]
  - Blister [Recovered/Resolved]
  - Dermatitis allergic [Recovered/Resolved]
  - Psoriasis [Not Recovered/Not Resolved]
